FAERS Safety Report 6149636-0 (Version None)
Quarter: 2009Q2

REPORT INFORMATION
  Report Type: 
  Country: None (occurrence: None)
  Receive Date: 20090407
  Receipt Date: 20090324
  Transmission Date: 20091009
  Serious: Yes (Hospitalization)
  Sender: FDA-Public Use
  Company Number: 2009-190063-NL

PATIENT
  Sex: Female

DRUGS (18)
  1. VECURONIUM BROMIDE [Suspect]
     Indication: MUSCLE RELAXANT THERAPY
     Dosage: INTRAVENOUS (NOS)
     Route: 042
     Dates: start: 20081219, end: 20081220
  2. VECURONIUM BROMIDE [Suspect]
     Indication: MUSCLE RELAXANT THERAPY
     Dosage: INTRAVENOUS (NOS)
     Route: 042
     Dates: start: 20081220, end: 20081229
  3. VECURONIUM BROMIDE [Suspect]
     Indication: MUSCLE RELAXANT THERAPY
     Dosage: INTRAVENOUS (NOS)
     Route: 042
     Dates: start: 20081229, end: 20090102
  4. VECURONIUM BROMIDE [Suspect]
     Indication: MUSCLE RELAXANT THERAPY
     Dosage: INTRAVENOUS (NOS)
     Route: 042
     Dates: start: 20090102, end: 20090110
  5. VECURONIUM BROMIDE [Suspect]
     Indication: MUSCLE RELAXANT THERAPY
     Dosage: INTRAVENOUS (NOS)
     Route: 042
     Dates: start: 20090110, end: 20090113
  6. XYLITOL [Concomitant]
  7. HEPARIN SODIUM [Concomitant]
  8. MIDAZOLAM HYDROCHLORIDE [Concomitant]
  9. DOPAMINE HYDROCHLORIDE [Concomitant]
  10. AMPICILLIN SODIUM [Concomitant]
  11. GENTAMICIN SULFATE [Concomitant]
  12. SODIUM CHLORIDE [Concomitant]
  13. ALBUMIN (HUMAN) [Concomitant]
  14. GLYCINE MAX SEED OIL [Concomitant]
  15. FUROSEMIDE [Concomitant]
  16. FLOMOXEF SODIUM [Concomitant]
  17. SODIUM CHLORIDE [Concomitant]
  18. DEXTROSE 5% [Concomitant]

REACTIONS (3)
  - MYDRIASIS [None]
  - NEUROMUSCULAR BLOCK PROLONGED [None]
  - PUPILLARY REFLEX IMPAIRED [None]
